FAERS Safety Report 9197321 (Version 2)
Quarter: 2013Q2

REPORT INFORMATION
  Report Type: Spontaneous
  Country: JP (occurrence: JP)
  Receive Date: 20130328
  Receipt Date: 20130409
  Transmission Date: 20140414
  Serious: Yes (Other)
  Sender: FDA-Public Use
  Company Number: JP-PFIZER INC-2013100686

PATIENT
  Age: 90 Year
  Sex: Female

DRUGS (3)
  1. CELECOX [Suspect]
     Indication: BACK PAIN
     Dosage: 200 MG, DAILY
     Route: 048
     Dates: start: 20100117
  2. GRINOLART [Concomitant]
     Dosage: UNK
     Dates: start: 20111208
  3. SENNOSIDE [Concomitant]
     Dosage: UNK
     Route: 048
     Dates: start: 20121026

REACTIONS (1)
  - Loss of consciousness [Recovered/Resolved]
